FAERS Safety Report 4840598-2 (Version None)
Quarter: 2005Q4

REPORT INFORMATION
  Report Type: 
  Country: None (occurrence: None)
  Receive Date: 20051129
  Receipt Date: 20051129
  Transmission Date: 20060501
  Serious: Yes (Hospitalization)
  Sender: FDA-Public Use
  Company Number: None

PATIENT
  Sex: Female
  Weight: 75 kg

DRUGS (8)
  1. RITUXAN [Suspect]
     Indication: MANTLE CELL LYMPHOMA
     Dosage: 675 MG DAY 1 IV
     Route: 042
     Dates: start: 20051101, end: 20051105
  2. DEXAMETHASONE [Suspect]
     Dosage: 40 MG DAYS 1-4 PO
     Route: 048
  3. ACYCLOVIR [Concomitant]
  4. FLUTICASONE [Concomitant]
  5. LORAZEPAM [Concomitant]
  6. LORATADINE [Concomitant]
  7. SYNTHROID [Concomitant]
  8. NEULASTA [Concomitant]

REACTIONS (6)
  - DEHYDRATION [None]
  - DIARRHOEA [None]
  - FEBRILE NEUTROPENIA [None]
  - HYPOKALAEMIA [None]
  - NEUTROPENIA [None]
  - PYREXIA [None]
